FAERS Safety Report 6640382-3 (Version None)
Quarter: 2010Q1

REPORT INFORMATION
  Report Type: 
  Country: None (occurrence: None)
  Receive Date: 20100303
  Receipt Date: 20090301
  Transmission Date: 20100710
  Serious: Yes (Disabling)
  Sender: FDA-Public Use
  Company Number: 619676

PATIENT
  Age: 69 Year
  Sex: Female
  Weight: 49 kg

DRUGS (5)
  1. BONIVA [Suspect]
     Indication: OSTEOPOROSIS
     Dosage: 3 MG 1 PER 3 MONTH INTRAVENOUS
     Route: 042
     Dates: start: 20070213, end: 20081201
  2. AMBIEN [Concomitant]
  3. ASPIRIN [Concomitant]
  4. DETROL LA [Concomitant]
  5. LIPITOR [Concomitant]

REACTIONS (7)
  - INFUSION SITE PAIN [None]
  - INJECTION SITE DISCOLOURATION [None]
  - INJECTION SITE INFECTION [None]
  - INJECTION SITE SWELLING [None]
  - PROCEDURAL COMPLICATION [None]
  - TENDON DISORDER [None]
  - TENOSYNOVITIS [None]
